FAERS Safety Report 23657147 (Version 1)
Quarter: 2024Q1

REPORT INFORMATION
  Report Type: Spontaneous
  Country: US (occurrence: US)
  Receive Date: 20240321
  Receipt Date: 20240321
  Transmission Date: 20240410
  Serious: No
  Sender: FDA-Public Use
  Company Number: US-002147023-NVSC2024US060604

PATIENT
  Age: 2 Year
  Sex: Male
  Weight: 12.9 kg

DRUGS (1)
  1. TRAMETINIB [Suspect]
     Active Substance: TRAMETINIB
     Indication: Product used for unknown indication
     Dosage: 9 ML (0.45 MG), QD
     Route: 048

REACTIONS (1)
  - Dysphagia [Unknown]
